FAERS Safety Report 10243927 (Version 1)
Quarter: 2014Q2

REPORT INFORMATION
  Report Type: Spontaneous
  Country: US (occurrence: None)
  Receive Date: 20140616
  Receipt Date: 20140616
  Transmission Date: 20141212
  Serious: Yes (Other)
  Sender: FDA-Public Use
  Company Number: 2013-US-003830

PATIENT
  Sex: Female
  Weight: 83.2 kg

DRUGS (6)
  1. XYREM (SODIUM OXYBATE) ORAL SOLUTION, 500MG/ML [Suspect]
     Indication: NARCOLEPSY
     Route: 048
     Dates: start: 200810, end: 2008
  2. XYREM (SODIUM OXYBATE) ORAL SOLUTION, 500MG/ML [Suspect]
     Indication: HYPERSOMNIA
     Route: 048
     Dates: start: 200810, end: 2008
  3. FLOMAX (TAMSULOSIN HYDROCHLORIDE) [Concomitant]
  4. MAXALT MLT (RIZATRIPTAN BENZOATE) [Concomitant]
  5. RANITIDINE (RANITIDINE HYDROCHLORIDE) [Concomitant]
  6. RITALIN [Concomitant]

REACTIONS (2)
  - Sleep apnoea syndrome [None]
  - Cholelithiasis [None]
